FAERS Safety Report 5609856-8 (Version None)
Quarter: 2008Q1

REPORT INFORMATION
  Report Type: 
  Country: None (occurrence: None)
  Receive Date: 20080131
  Receipt Date: 20080123
  Transmission Date: 20080703
  Serious: Yes (Death, Hospitalization)
  Sender: FDA-Public Use
  Company Number: US-ELI_LILLY_AND_COMPANY-US200801004882

PATIENT
  Age: 80 Year
  Sex: Female

DRUGS (1)
  1. OLANZAPINE [Suspect]

REACTIONS (2)
  - PNEUMONIA [None]
  - SEPSIS [None]
